FAERS Safety Report 25963238 (Version 1)
Quarter: 2025Q4

REPORT INFORMATION
  Report Type: Spontaneous
  Country: CN (occurrence: CN)
  Receive Date: 20251027
  Receipt Date: 20251027
  Transmission Date: 20260117
  Serious: Yes (Other)
  Sender: PFIZER
  Company Number: CN-PFIZER INC-PV202500125323

PATIENT
  Age: 66 Year
  Sex: Male

DRUGS (1)
  1. TIGECYCLINE [Suspect]
     Active Substance: TIGECYCLINE
     Indication: Pneumonia
     Dosage: 100 MG, 2X/DAY
     Route: 041
     Dates: start: 20251013, end: 20251020

REACTIONS (5)
  - Blood bilirubin increased [Not Recovered/Not Resolved]
  - Yellow skin [Unknown]
  - Ocular icterus [Unknown]
  - Chromaturia [Unknown]
  - Off label use [Unknown]

NARRATIVE: CASE EVENT DATE: 20251013
